FAERS Safety Report 21701571 (Version 2)
Quarter: 2022Q4

REPORT INFORMATION
  Report Type: Spontaneous
  Country: US (occurrence: US)
  Receive Date: 20221208
  Receipt Date: 20221219
  Transmission Date: 20230113
  Serious: Yes (Hospitalization)
  Sender: FDA-Public Use
  Company Number: US-TEVA-2022-US-2832658

PATIENT
  Age: 64 Year
  Sex: Female

DRUGS (2)
  1. CISPLATIN [Suspect]
     Active Substance: CISPLATIN
     Indication: Uterine cancer
     Dosage: ADMINISTERED IN SODIUM CHLORIDE [NORMAL SALINE PERFUSATE] AT A GOAL TEMPERATURE OF 41-43 C FOR 90MIN
     Route: 033
  2. PACLITAXEL [Suspect]
     Active Substance: PACLITAXEL
     Indication: Uterine cancer
     Dosage: ADMINISTERED IN SODIUM CHLORIDE [NORMAL SALINE PERFUSATE] AT A GOAL TEMPERATURE OF 41-43 C FOR 90MIN
     Route: 033

REACTIONS (1)
  - Anastomotic leak [Recovering/Resolving]
